FAERS Safety Report 16406276 (Version 1)
Quarter: 2019Q2

REPORT INFORMATION
  Report Type: Spontaneous
  Country: US (occurrence: US)
  Receive Date: 20190607
  Receipt Date: 20190607
  Transmission Date: 20190711
  Serious: No
  Sender: FDA-Public Use
  Company Number: US-ALLERGAN-1852653US

PATIENT
  Age: 50 Year
  Sex: Female

DRUGS (5)
  1. MULTIVITAMIN [Concomitant]
     Active Substance: VITAMINS
  2. ORPHENADRINE [Concomitant]
     Active Substance: ORPHENADRINE
     Indication: MUSCLE RELAXANT THERAPY
  3. VIBERZI [Suspect]
     Active Substance: ELUXADOLINE
     Indication: DIARRHOEA
     Dosage: 100 MG, BID
     Route: 048
     Dates: start: 20181103
  4. LYRICA [Concomitant]
     Active Substance: PREGABALIN
     Indication: FIBROMYALGIA
     Dosage: 100 MG, UNK
  5. VITAMIN C [Concomitant]
     Active Substance: ASCORBIC ACID

REACTIONS (5)
  - Confusional state [Unknown]
  - Dysarthria [Unknown]
  - Diarrhoea [Unknown]
  - Back pain [Unknown]
  - Somnolence [Unknown]

NARRATIVE: CASE EVENT DATE: 20181106
